FAERS Safety Report 21121310 (Version 20)
Quarter: 2023Q1

REPORT INFORMATION
  Report Type: Spontaneous
  Country: CA (occurrence: CA)
  Receive Date: 20220722
  Receipt Date: 20230227
  Transmission Date: 20230417
  Serious: Yes (Other)
  Sender: FDA-Public Use
  Company Number: CA-PFIZER INC-202200990173

PATIENT
  Age: 72 Year
  Sex: Female

DRUGS (4)
  1. ABRILADA [Suspect]
     Active Substance: ADALIMUMAB-AFZB
     Indication: Crohn^s disease
     Dosage: 1 DF (WEEK 0 - 160 MG, WEEK 2 - 80 MG, THEN 40 MG EVERY OTHER WEEK STARTING WEEK 4)
     Route: 058
     Dates: start: 20220526, end: 2022
  2. ABRILADA [Suspect]
     Active Substance: ADALIMUMAB-AFZB
     Dosage: 1 DF (WEEK 0-160 MG, WEEK 2 - 80 MG, THEN 40 MG EVERY OTHER WEEK STARTING WEEK 4)
     Route: 058
     Dates: start: 20220809
  3. ABRILADA [Suspect]
     Active Substance: ADALIMUMAB-AFZB
     Dosage: 1 DF (WEEK 0 - 160 MG, WEEK 2 - 80 MG, THEN 40 MG EVERY OTHER WEEK STARTING WEEK 4)
     Route: 058
     Dates: start: 20220823
  4. PREDNISONE [Concomitant]
     Active Substance: PREDNISONE
     Dosage: 25 MG, TAPER-STARTED AT 30 MG
     Route: 065
     Dates: start: 20220517

REACTIONS (18)
  - Blood iron decreased [Unknown]
  - Drug specific antibody present [Not Recovered/Not Resolved]
  - Intentional product use issue [Unknown]
  - Device difficult to use [Unknown]
  - Poor quality device used [Unknown]
  - Injection site haemorrhage [Unknown]
  - Malaise [Recovering/Resolving]
  - Diarrhoea [Not Recovered/Not Resolved]
  - Weight decreased [Not Recovered/Not Resolved]
  - Faeces discoloured [Not Recovered/Not Resolved]
  - Asthenia [Unknown]
  - Pain in extremity [Unknown]
  - Thyroid disorder [Unknown]
  - Urticaria [Not Recovered/Not Resolved]
  - Needle issue [Unknown]
  - Alopecia [Recovering/Resolving]
  - Walking aid user [Unknown]
  - Frequent bowel movements [Not Recovered/Not Resolved]

NARRATIVE: CASE EVENT DATE: 20220101
